FAERS Safety Report 20175760 (Version 2)
Quarter: 2021Q4

REPORT INFORMATION
  Report Type: Spontaneous
  Country: US (occurrence: US)
  Receive Date: 20211213
  Receipt Date: 20211224
  Transmission Date: 20220303
  Serious: No
  Sender: FDA-Public Use
  Company Number: US-APOTEX-2021AP045426

PATIENT
  Sex: Male

DRUGS (3)
  1. FENTANYL TRANSDERMAL SYSTEM [Suspect]
     Active Substance: FENTANYL
     Indication: Intervertebral disc protrusion
     Dosage: UNK (1 PATCH FOR 2 DAYS)
     Route: 065
  2. FENTANYL TRANSDERMAL SYSTEM [Suspect]
     Active Substance: FENTANYL
     Indication: Spinal stenosis
  3. OXYCODONE [Concomitant]
     Active Substance: OXYCODONE
     Indication: Breakthrough pain
     Dosage: 15 MILLIGRAM, BID
     Route: 065

REACTIONS (7)
  - Dysphagia [Recovered/Resolved]
  - Eosinophil count abnormal [Recovered/Resolved]
  - Throat tightness [Recovered/Resolved]
  - Product adhesion issue [Unknown]
  - Application site swelling [Recovered/Resolved]
  - Hypersensitivity [Recovered/Resolved]
  - Drug ineffective [Unknown]
